FAERS Safety Report 24528760 (Version 1)
Quarter: 2024Q4

REPORT INFORMATION
  Report Type: Spontaneous
  Country: US (occurrence: US)
  Receive Date: 20241021
  Receipt Date: 20241021
  Transmission Date: 20250114
  Serious: No
  Sender: GILEAD
  Company Number: US-GILEAD-2024-0691310

PATIENT

DRUGS (2)
  1. VEKLURY [Suspect]
     Active Substance: REMDESIVIR
     Indication: Product used for unknown indication
     Dosage: REMDESIVIR 100 MG INJ 200 MG,NS 250 ML RX BAG 250 ML IN 250 ML
     Route: 065
     Dates: start: 20240806
  2. VEKLURY [Suspect]
     Active Substance: REMDESIVIR
     Dosage: REMDESIVIR 100 MG INJ 100 MG,NS 100 ML RX BAG 100 ML IN 100 ML
     Route: 065
     Dates: start: 20240807

REACTIONS (1)
  - Recalled product administered [Unknown]
